FAERS Safety Report 12191165 (Version 1)
Quarter: 2016Q1

REPORT INFORMATION
  Report Type: Spontaneous
  Country: ES (occurrence: ES)
  Receive Date: 20160318
  Receipt Date: 20160318
  Transmission Date: 20160526
  Serious: Yes (Hospitalization)
  Sender: FDA-Public Use
  Company Number: ES-EDISONTHERAPEUTICS-2016-ES-000002

PATIENT
  Sex: Female

DRUGS (1)
  1. METHERGINE [Suspect]
     Active Substance: METHYLERGONOVINE MALEATE
     Dosage: 1 DF,

REACTIONS (2)
  - Bronchospasm [Unknown]
  - Face oedema [Unknown]

NARRATIVE: CASE EVENT DATE: 201601
